FAERS Safety Report 15077320 (Version 1)
Quarter: 2018Q2

REPORT INFORMATION
  Report Type: Spontaneous
  Country: US (occurrence: US)
  Receive Date: 20180627
  Receipt Date: 20180627
  Transmission Date: 20180711
  Serious: No
  Sender: FDA-Public Use
  Company Number: US-GLAXOSMITHKLINE-US2018114224

PATIENT
  Sex: Female

DRUGS (1)
  1. NUCALA [Suspect]
     Active Substance: MEPOLIZUMAB
     Indication: ASTHMA
     Dosage: UNK

REACTIONS (9)
  - Swelling face [Unknown]
  - Peripheral swelling [Unknown]
  - Eosinophil count decreased [Unknown]
  - Laboratory test abnormal [Unknown]
  - Headache [Unknown]
  - Fatigue [Unknown]
  - Blood sodium decreased [Unknown]
  - Joint swelling [Unknown]
  - Back pain [Unknown]
